FAERS Safety Report 4508945-9 (Version None)
Quarter: 2004Q4

REPORT INFORMATION
  Report Type: 
  Country: None (occurrence: None)
  Receive Date: 20041123
  Receipt Date: 20041112
  Transmission Date: 20050328
  Serious: Yes (Life-Threatening)
  Sender: FDA-Public Use
  Company Number: FR-GLAXOSMITHKLINE-B0357053A

PATIENT
  Age: 33 Year
  Sex: Female

DRUGS (1)
  1. CLAMOXYL [Suspect]
     Indication: BETA HAEMOLYTIC STREPTOCOCCAL INFECTION
     Dosage: 2G CUMULATIVE DOSE
     Route: 042
     Dates: start: 20041019, end: 20041019

REACTIONS (13)
  - ABDOMINAL PAIN [None]
  - AGITATION [None]
  - BRADYCARDIA FOETAL [None]
  - CAESAREAN SECTION [None]
  - DRUG EXPOSURE DURING PREGNANCY [None]
  - HAEMODYNAMIC INSTABILITY [None]
  - HYPERSENSITIVITY [None]
  - HYPOTENSION [None]
  - MALAISE [None]
  - OEDEMA PERIPHERAL [None]
  - RASH ERYTHEMATOUS [None]
  - TACHYCARDIA [None]
  - VOMITING [None]
